FAERS Safety Report 4434220-7 (Version None)
Quarter: 2004Q3

REPORT INFORMATION
  Report Type: 
  Country: None (occurrence: None)
  Receive Date: 20040825
  Receipt Date: 20040806
  Transmission Date: 20050211
  Serious: Yes (Other)
  Sender: FDA-Public Use
  Company Number: GBS040815383

PATIENT
  Age: 69 Year
  Sex: Female
  Weight: 51 kg

DRUGS (4)
  1. GEMCITABINE HYDROCHLORIDE              (GEMCITABINE) [Suspect]
     Indication: NON-SMALL CELL LUNG CANCER
     Dosage: 1716 MG
     Route: 042
     Dates: start: 20030904, end: 20031113
  2. CARBOPLATIN [Concomitant]
  3. BETAHISTINE [Concomitant]
  4. DOTHIEPIN HYDROCHLORIDE [Concomitant]

REACTIONS (2)
  - OESOPHAGITIS [None]
  - WEIGHT DECREASED [None]
